FAERS Safety Report 6372294-7 (Version None)
Quarter: 2009Q3

REPORT INFORMATION
  Report Type: 
  Country: None (occurrence: None)
  Receive Date: 20090924
  Receipt Date: 20071227
  Transmission Date: 20100115
  Serious: Yes (Hospitalization, Other)
  Sender: FDA-Public Use
  Company Number: US-ASTRAZENECA-2006UW27503

PATIENT
  Age: 43 Year
  Sex: Male
  Weight: 81.6 kg

DRUGS (21)
  1. SEROQUEL [Suspect]
     Indication: SCHIZOPHRENIA
     Dosage: 200-400 MG
     Route: 048
     Dates: start: 19950601
  2. SEROQUEL [Suspect]
     Indication: DEPRESSION
     Dosage: 200-400 MG
     Route: 048
     Dates: start: 19950601
  3. SEROQUEL [Suspect]
     Indication: SCHIZOAFFECTIVE DISORDER
     Dosage: 200-400 MG
     Route: 048
     Dates: start: 19950601
  4. SEROQUEL [Suspect]
     Indication: PSYCHOTIC DISORDER
     Dosage: 200-400 MG
     Route: 048
     Dates: start: 19950601
  5. SEROQUEL [Suspect]
     Indication: AFFECTIVE DISORDER
     Dosage: 200-400 MG
     Route: 048
     Dates: start: 19950601
  6. SEROQUEL [Suspect]
     Dosage: 25 MG - 400 MG
     Route: 048
     Dates: start: 20000120
  7. SEROQUEL [Suspect]
     Dosage: 25 MG - 400 MG
     Route: 048
     Dates: start: 20000120
  8. SEROQUEL [Suspect]
     Dosage: 25 MG - 400 MG
     Route: 048
     Dates: start: 20000120
  9. SEROQUEL [Suspect]
     Dosage: 25 MG - 400 MG
     Route: 048
     Dates: start: 20000120
  10. SEROQUEL [Suspect]
     Dosage: 25 MG - 400 MG
     Route: 048
     Dates: start: 20000120
  11. CLOZARIL [Concomitant]
  12. GEODON [Concomitant]
  13. HALDOL [Concomitant]
  14. NAVANE [Concomitant]
  15. RISPERDAL [Concomitant]
  16. STELAZINE [Concomitant]
  17. THORAZINE [Concomitant]
  18. ZYPREXA [Concomitant]
  19. KLONOPIN [Concomitant]
     Dosage: 1.5 MG - 60 MG
     Route: 048
     Dates: start: 19980508
  20. EFFEXOR XR [Concomitant]
  21. LANTUS [Concomitant]
     Dosage: 90 UNITS OF LANTUS EACH NIGHT

REACTIONS (7)
  - DIABETES MELLITUS [None]
  - DIABETIC FOOT [None]
  - DIABETIC HYPEROSMOLAR COMA [None]
  - INSULIN-REQUIRING TYPE 2 DIABETES MELLITUS [None]
  - METABOLIC ACIDOSIS [None]
  - TARDIVE DYSKINESIA [None]
  - TYPE 1 DIABETES MELLITUS [None]
